FAERS Safety Report 10510906 (Version 2)
Quarter: 2015Q1

REPORT INFORMATION
  Report Type: Report from Study
  Country: US (occurrence: US)
  Receive Date: 20141010
  Receipt Date: 20150202
  Transmission Date: 20150720
  Serious: Yes (Other)
  Sender: FDA-Public Use
  Company Number: PHEH2014US019844

PATIENT
  Sex: Male
  Weight: 74.84 kg

DRUGS (2)
  1. PRILOSEC [Concomitant]
     Active Substance: OMEPRAZOLE MAGNESIUM
     Indication: PRODUCT USED FOR UNKNOWN INDICATION
     Route: 065
  2. GILENYA [Suspect]
     Active Substance: FINGOLIMOD HYDROCHLORIDE
     Indication: MULTIPLE SCLEROSIS
     Dosage: 0.5 MG, QD
     Route: 048
     Dates: start: 20140822

REACTIONS (9)
  - Benign prostatic hyperplasia [Unknown]
  - Ocular discomfort [Recovered/Resolved]
  - Urinary tract infection [Unknown]
  - Visual impairment [Recovered/Resolved]
  - Nasopharyngitis [Unknown]
  - Weight decreased [Recovering/Resolving]
  - Multiple sclerosis [Recovered/Resolved]
  - Feeling abnormal [Unknown]
  - Infection [Unknown]
